FAERS Safety Report 25350754 (Version 1)
Quarter: 2025Q2

REPORT INFORMATION
  Report Type: Spontaneous
  Country: CY (occurrence: CY)
  Receive Date: 20250523
  Receipt Date: 20250523
  Transmission Date: 20250716
  Serious: Yes (Other)
  Sender: AMGEN
  Company Number: CY-AMGEN-CYPSP2025097609

PATIENT

DRUGS (2)
  1. NPLATE [Suspect]
     Active Substance: ROMIPLOSTIM
     Indication: Immune thrombocytopenia
     Route: 065
     Dates: start: 20231016
  2. NPLATE [Suspect]
     Active Substance: ROMIPLOSTIM
     Route: 065

REACTIONS (2)
  - Platelet count decreased [Unknown]
  - Skin haemorrhage [Unknown]
